FAERS Safety Report 8363571-9 (Version None)
Quarter: 2012Q1

REPORT INFORMATION
  Report Type: 
  Country: None (occurrence: None)
  Receive Date: 20120323
  Receipt Date: 20110811
  Transmission Date: 20120608
  Serious: Yes (Other)
  Sender: FDA-Public Use
  Company Number: 163-21880-11052200

PATIENT
  Age: 78 Year
  Sex: Male
  Weight: 70.45 kg

DRUGS (12)
  1. OMEPRAZOLE [Concomitant]
  2. LIDOCAINE [Concomitant]
  3. LEVOTHYROXINE SODIUM [Concomitant]
  4. ACETAMINOPHEN [Concomitant]
  5. DOCUSATE (DOCUSATE) [Concomitant]
  6. REVLIMID [Suspect]
     Indication: MULTIPLE MYELOMA
     Dosage: 25 MG, DAYS 1-21, PO
     Route: 048
     Dates: start: 20110101, end: 20110401
  7. SENNA (SENNA) [Concomitant]
  8. DILTIAZEM [Concomitant]
  9. MIRALAX [Concomitant]
  10. COUMADIN [Concomitant]
  11. SILDENAFIL CITRATE [Concomitant]
  12. TYLENOL WITH CODEINE (PANADEINE CO) [Concomitant]

REACTIONS (1)
  - RASH MACULO-PAPULAR [None]
